FAERS Safety Report 23105740 (Version 1)
Quarter: 2023Q4

REPORT INFORMATION
  Report Type: Spontaneous
  Country: IE (occurrence: IE)
  Receive Date: 20231025
  Receipt Date: 20231025
  Transmission Date: 20240109
  Serious: Yes (Other)
  Sender: FDA-Public Use
  Company Number: None

PATIENT
  Age: 38 Year
  Sex: Male

DRUGS (3)
  1. LYRICA [Suspect]
     Active Substance: PREGABALIN
     Indication: Product used for unknown indication
     Dosage: QD 500-1500 MG DAILY
     Route: 048
     Dates: start: 2022
  2. ZOPICLONE [Suspect]
     Active Substance: ZOPICLONE
     Indication: Product used for unknown indication
     Dosage: QD 5-20 TABLETS DAILY
     Route: 048
     Dates: start: 2022
  3. DIAZEPAM [Suspect]
     Active Substance: DIAZEPAM
     Indication: Product used for unknown indication
     Dosage: QD 5-20 TABLETS DAILY
     Route: 048
     Dates: start: 2022

REACTIONS (4)
  - Disease risk factor [Unknown]
  - Euphoric mood [Unknown]
  - Drug abuse [Unknown]
  - Prescription drug used without a prescription [Unknown]
